FAERS Safety Report 7763386-6 (Version None)
Quarter: 2011Q3

REPORT INFORMATION
  Report Type: 
  Country: None (occurrence: None)
  Receive Date: 20110920
  Receipt Date: 20110913
  Transmission Date: 20111222
  Serious: Yes (Hospitalization, Disabling, Other)
  Sender: FDA-Public Use
  Company Number: US-AMGEN-USASP2011045845

PATIENT
  Sex: Male
  Weight: 50 kg

DRUGS (17)
  1. NEPHROCAPS [Concomitant]
     Dosage: 1 DF, QD
     Route: 048
  2. AMIODARONE HYDROCHLORIDE [Concomitant]
     Dosage: 200 MG, QD
     Route: 048
  3. PREVACID [Concomitant]
     Dosage: 30 MG, QD
     Route: 048
  4. NPLATE [Suspect]
     Indication: IDIOPATHIC THROMBOCYTOPENIC PURPURA
     Dates: start: 20110105, end: 20110121
  5. SIMVASTATIN [Concomitant]
     Dosage: 40 MG, QHS
     Route: 048
  6. LISINOPRIL [Concomitant]
     Dosage: 40 MG, QD
     Route: 048
  7. DOXAZOSIN MESYLATE [Concomitant]
     Dosage: 8 MG, QHS
     Route: 048
  8. AMLODIPINE [Concomitant]
     Dosage: UNK
     Route: 048
  9. CARVEDILOL [Concomitant]
     Dosage: 25 MG, BID
     Route: 048
  10. NIFEREX FORTE [Concomitant]
     Dosage: 1 DF, UNK
     Route: 048
  11. HUMALOG [Concomitant]
     Route: 058
  12. MAGNESIUM [Concomitant]
     Dosage: 400 MG, QD
     Route: 048
  13. FOLIC ACID [Concomitant]
     Dosage: 1 DF, TID
     Route: 048
  14. VICODIN [Concomitant]
     Dosage: UNK UNK, PRN
     Route: 048
  15. LEVOTHYROXINE SODIUM [Concomitant]
     Dosage: 88 MU, QD
     Route: 048
  16. PREDNISONE [Concomitant]
  17. LANTUS [Concomitant]
     Dosage: 55 UNIT, QD
     Route: 058

REACTIONS (11)
  - ARTHRITIS BACTERIAL [None]
  - RENAL FAILURE CHRONIC [None]
  - HAEMOLYSIS [None]
  - PLATELET COUNT DECREASED [None]
  - WEIGHT DECREASED [None]
  - EXTRADURAL ABSCESS [None]
  - JOINT SWELLING [None]
  - SEPSIS [None]
  - ECCHYMOSIS [None]
  - ARTHRALGIA [None]
  - CONFUSIONAL STATE [None]
